FAERS Safety Report 14176944 (Version 1)
Quarter: 2017Q4

REPORT INFORMATION
  Report Type: Spontaneous
  Country: US (occurrence: US)
  Receive Date: 20171110
  Receipt Date: 20171110
  Transmission Date: 20180321
  Serious: Yes (Disabling)
  Sender: FDA-Public Use
  Company Number: None

PATIENT
  Age: 61 Year
  Sex: Female
  Weight: 60.75 kg

DRUGS (6)
  1. CYTOMEL [Concomitant]
     Active Substance: LIOTHYRONINE SODIUM
  2. NEXIUM [Concomitant]
     Active Substance: ESOMEPRAZOLE MAGNESIUM
  3. CIPROFLOXIN [Suspect]
     Active Substance: CIPROFLOXACIN
     Indication: URINARY TRACT INFECTION
     Dosage: ?          QUANTITY:1 TABLET(S);?
     Route: 048
     Dates: start: 20170629, end: 20170702
  4. SYNTHROID [Concomitant]
     Active Substance: LEVOTHYROXINE SODIUM
  5. VITAMIN D [Concomitant]
     Active Substance: CHOLECALCIFEROL
  6. PROBIOTIC CULTERELLE [Concomitant]

REACTIONS (13)
  - Dry eye [None]
  - Headache [None]
  - Fatigue [None]
  - Abdominal discomfort [None]
  - Feeling abnormal [None]
  - Insomnia [None]
  - Decreased appetite [None]
  - Dry mouth [None]
  - Tinnitus [None]
  - Weight decreased [None]
  - Neuropathy peripheral [None]
  - Anxiety [None]
  - Vertigo [None]

NARRATIVE: CASE EVENT DATE: 20170705
